FAERS Safety Report 6170663-1 (Version None)
Quarter: 2009Q2

REPORT INFORMATION
  Report Type: 
  Country: None (occurrence: None)
  Receive Date: 20090428
  Receipt Date: 20090416
  Transmission Date: 20091009
  Serious: Yes (Death)
  Sender: FDA-Public Use
  Company Number: BR-PFIZER INC-2009199761

PATIENT

DRUGS (1)
  1. DOSTINEX [Suspect]
     Indication: BRAIN NEOPLASM
     Dosage: 0.25 MG, EVERY THREE DAYS
     Dates: start: 20090401

REACTIONS (1)
  - DEATH [None]
